FAERS Safety Report 9596597 (Version 1)
Quarter: 2013Q4

REPORT INFORMATION
  Report Type: Spontaneous
  Country: US (occurrence: US)
  Receive Date: 20131004
  Receipt Date: 20131004
  Transmission Date: 20140711
  Serious: No
  Sender: FDA-Public Use
  Company Number: US-AMGEN-USASP2012068538

PATIENT
  Sex: Male
  Weight: 58.05 kg

DRUGS (20)
  1. ENBREL [Suspect]
     Indication: PSORIATIC ARTHROPATHY
     Dosage: 50 MG, QWK
     Route: 058
     Dates: end: 20120928
  2. ASPIRE [Concomitant]
     Dosage: 81 MG, UNK
  3. MELOXICAM ALTERNOVA [Concomitant]
     Dosage: 7.5 MG, UNK
  4. TOPROL [Concomitant]
     Dosage: 100 MG, UNK
  5. PREDNISONE [Concomitant]
     Dosage: 1 MG, UNK
  6. VITAMIN D                          /00107901/ [Concomitant]
     Dosage: 2000 UNIT, 3 CAP UNK
  7. CALCIUM CITRATE [Concomitant]
     Dosage: 200 MG, UNK
  8. METHOTREXATE [Concomitant]
     Dosage: 2.5 MG, UNK
  9. LEUCOVORIN CA [Concomitant]
     Dosage: 10 MG, UNK
  10. LEFLUNOMIDE [Concomitant]
     Dosage: 10 MG, UNK
  11. OMEGA-3                            /01866101/ [Concomitant]
     Dosage: UNK
  12. MULTIVITAMIN                       /00097801/ [Concomitant]
     Dosage: UNK
  13. VITAMIN B 12 [Concomitant]
     Dosage: 100 MCG, UNK
  14. MAGNESIUM [Concomitant]
     Dosage: 300 MG, UNK
  15. FLOMAX                             /00889901/ [Concomitant]
     Dosage: 0.4 MG, UNK
  16. SAW PALMETTO                       /00833501/ [Concomitant]
     Dosage: UNK
  17. METHENAMINE [Concomitant]
     Dosage: 0.5 MG, UNK
  18. OXYBUTYNIN [Concomitant]
     Dosage: 10 MG, UNK
  19. LIPITOR [Concomitant]
     Dosage: 10 MG, UNK
  20. PHENAZO [Concomitant]
     Dosage: 200 MG, UNK

REACTIONS (1)
  - Local swelling [Unknown]
